FAERS Safety Report 25198521 (Version 1)
Quarter: 2025Q2

REPORT INFORMATION
  Report Type: Spontaneous
  Country: PT (occurrence: PT)
  Receive Date: 20250415
  Receipt Date: 20250415
  Transmission Date: 20250716
  Serious: Yes (Hospitalization, Other)
  Sender: MYLAN
  Company Number: PT-MYLANLABS-2025M1031830

PATIENT
  Age: 28 Year
  Sex: Female

DRUGS (24)
  1. ACETAMINOPHEN [Suspect]
     Active Substance: ACETAMINOPHEN
     Indication: Pyrexia
  2. ACETAMINOPHEN [Suspect]
     Active Substance: ACETAMINOPHEN
     Route: 065
  3. ACETAMINOPHEN [Suspect]
     Active Substance: ACETAMINOPHEN
     Route: 065
  4. ACETAMINOPHEN [Suspect]
     Active Substance: ACETAMINOPHEN
  5. DICLOFENAC [Suspect]
     Active Substance: DICLOFENAC
     Indication: Product used for unknown indication
  6. DICLOFENAC [Suspect]
     Active Substance: DICLOFENAC
     Route: 065
  7. DICLOFENAC [Suspect]
     Active Substance: DICLOFENAC
     Route: 065
  8. DICLOFENAC [Suspect]
     Active Substance: DICLOFENAC
  9. METHYLDOPA [Concomitant]
     Active Substance: METHYLDOPA
  10. METHYLDOPA [Concomitant]
     Active Substance: METHYLDOPA
     Route: 065
  11. METHYLDOPA [Concomitant]
     Active Substance: METHYLDOPA
     Route: 065
  12. METHYLDOPA [Concomitant]
     Active Substance: METHYLDOPA
  13. FOLIC ACID [Concomitant]
     Active Substance: FOLIC ACID
  14. FOLIC ACID [Concomitant]
     Active Substance: FOLIC ACID
     Route: 065
  15. FOLIC ACID [Concomitant]
     Active Substance: FOLIC ACID
     Route: 065
  16. FOLIC ACID [Concomitant]
     Active Substance: FOLIC ACID
  17. IRON [Concomitant]
     Active Substance: IRON
  18. IRON [Concomitant]
     Active Substance: IRON
     Route: 048
  19. IRON [Concomitant]
     Active Substance: IRON
     Route: 048
  20. IRON [Concomitant]
     Active Substance: IRON
  21. CEFTRIAXONE [Concomitant]
     Active Substance: CEFTRIAXONE
     Indication: Prophylaxis
  22. CEFTRIAXONE [Concomitant]
     Active Substance: CEFTRIAXONE
     Route: 065
  23. CEFTRIAXONE [Concomitant]
     Active Substance: CEFTRIAXONE
     Route: 065
  24. CEFTRIAXONE [Concomitant]
     Active Substance: CEFTRIAXONE

REACTIONS (2)
  - Drug reaction with eosinophilia and systemic symptoms [Recovered/Resolved]
  - Maternal exposure during breast feeding [Recovered/Resolved]
